FAERS Safety Report 8317655 (Version 2)
Quarter: 2013Q1

REPORT INFORMATION
  Report Type: Spontaneous
  Country: JP (occurrence: JP)
  Receive Date: 20120102
  Receipt Date: 20130320
  Transmission Date: 20140127
  Serious: Yes (Hospitalization, Other)
  Sender: FDA-Public Use
  Company Number: PHHY2011JP098757

PATIENT
  Age: 39 Year
  Sex: Male

DRUGS (14)
  1. NEORAL [Suspect]
     Indication: COLITIS ULCERATIVE
     Route: 048
     Dates: start: 200506
  2. NEORAL [Suspect]
     Dosage: 150 MG, UNK
     Route: 048
     Dates: start: 20111005
  3. NEORAL [Suspect]
     Dosage: 200 MG, UNK
     Route: 048
     Dates: start: 20111024
  4. NEORAL [Suspect]
     Dosage: 150 MG, UNK
     Route: 048
     Dates: start: 20111102
  5. SANDIMMUN [Suspect]
     Indication: COLITIS ULCERATIVE
     Dosage: 250 MG, QD
     Route: 041
     Dates: start: 20111007, end: 20111024
  6. PHYSIO 35 [Concomitant]
  7. VITAMEDIN [Concomitant]
     Route: 048
  8. INTRAFAT [Concomitant]
  9. GASTER D [Concomitant]
     Route: 048
  10. BIO-THREE [Concomitant]
     Route: 048
  11. LIPITOR [Concomitant]
     Route: 048
  12. ASACOL [Concomitant]
     Route: 048
  13. FOSMICIN [Concomitant]
     Route: 048
  14. OMNIPAQUE [Concomitant]
     Dosage: UNK
     Dates: start: 20111007, end: 20111007

REACTIONS (5)
  - Colitis ulcerative [Recovering/Resolving]
  - Renal disorder [Recovering/Resolving]
  - Blood creatinine increased [Recovering/Resolving]
  - Renal impairment [Recovering/Resolving]
  - Immunosuppressant drug level increased [Recovering/Resolving]
